FAERS Safety Report 4903116-6 (Version None)
Quarter: 2006Q1

REPORT INFORMATION
  Report Type: 
  Country: None (occurrence: None)
  Receive Date: 20060207
  Receipt Date: 20060201
  Transmission Date: 20060701
  Serious: Yes (Hospitalization, Disabling)
  Sender: FDA-Public Use
  Company Number: PR-MERCK-0602USA00286

PATIENT
  Age: 73 Year
  Sex: Male
  Weight: 80 kg

DRUGS (4)
  1. VIOXX [Suspect]
     Indication: ANALGESIC EFFECT
     Route: 048
     Dates: start: 20000601, end: 20010301
  2. VIOXX [Suspect]
     Route: 048
     Dates: start: 20000601, end: 20010301
  3. VIOXX [Suspect]
     Indication: VERTEBRAL INJURY
     Route: 048
     Dates: start: 20000601, end: 20010301
  4. VIOXX [Suspect]
     Route: 048
     Dates: start: 20000601, end: 20010301

REACTIONS (6)
  - CARDIAC DISORDER [None]
  - CARDIAC FAILURE [None]
  - DYSPNOEA [None]
  - EYE DISORDER [None]
  - HAEMATOCHEZIA [None]
  - LUNG DISORDER [None]
